FAERS Safety Report 7472244-6 (Version None)
Quarter: 2011Q2

REPORT INFORMATION
  Report Type: 
  Country: None (occurrence: None)
  Receive Date: 20110502
  Receipt Date: 20110421
  Transmission Date: 20111010
  Serious: Yes (Death, Other)
  Sender: FDA-Public Use
  Company Number: ALA_01864_2011

PATIENT
  Sex: Male

DRUGS (1)
  1. METOCLOPRAMIDE [Suspect]
     Indication: PRODUCT USED FOR UNKNOWN INDICATION
     Dosage: (DF ORAL)
     Route: 048
     Dates: start: 20060201, end: 20090201

REACTIONS (12)
  - POLYNEUROPATHY [None]
  - AKATHISIA [None]
  - EMOTIONAL DISORDER [None]
  - GAIT DISTURBANCE [None]
  - TARDIVE DYSKINESIA [None]
  - BRUXISM [None]
  - EXTRAPYRAMIDAL DISORDER [None]
  - DYSAESTHESIA [None]
  - EPILEPSY [None]
  - DYSKINESIA [None]
  - NEURODEGENERATIVE DISORDER [None]
  - ECONOMIC PROBLEM [None]
